FAERS Safety Report 6654388-1 (Version None)
Quarter: 2010Q1

REPORT INFORMATION
  Report Type: 
  Country: None (occurrence: None)
  Receive Date: 20100326
  Receipt Date: 20100318
  Transmission Date: 20100710
  Serious: Yes (Hospitalization)
  Sender: FDA-Public Use
  Company Number: FR-PFIZER INC-2010035528

PATIENT
  Age: 88 Year
  Sex: Male

DRUGS (3)
  1. TAHOR [Suspect]
     Dosage: 40 MG, 1X/DAY
     Route: 048
     Dates: start: 20090925, end: 20090929
  2. SINTROM [Suspect]
     Indication: CARDIAC VALVE PROSTHESIS USER
     Dosage: 3 MG, 1X/DAY
     Route: 048
     Dates: end: 20090929
  3. CALCIPARINE [Suspect]
     Dosage: 0.35 ML, 2X/DAY
     Route: 058
     Dates: start: 20090925, end: 20090929

REACTIONS (2)
  - GASTRIC ULCER HAEMORRHAGE [None]
  - INTERNATIONAL NORMALISED RATIO INCREASED [None]
